FAERS Safety Report 13277810 (Version 1)
Quarter: 2017Q1

REPORT INFORMATION
  Report Type: Spontaneous
  Country: CN (occurrence: CN)
  Receive Date: 20170228
  Receipt Date: 20170228
  Transmission Date: 20170428
  Serious: Yes (Hospitalization, Other)
  Sender: FDA-Public Use
  Company Number: CN-SA-2017SA032757

PATIENT
  Age: 61 Year
  Sex: Male
  Weight: 60 kg

DRUGS (3)
  1. OTERACIL POTASSIUM/GIMERACIL/TEGAFUR [Concomitant]
     Indication: GASTRIC CANCER
     Dosage: (75MG (MORING), 50MG (EVENING), PO, BID,D1-D14)
     Route: 048
     Dates: start: 20160602
  2. ELOXATIN [Suspect]
     Active Substance: OXALIPLATIN
     Indication: GASTRIC CANCER
     Route: 041
     Dates: start: 20160602, end: 20160602
  3. ELOXATIN [Suspect]
     Active Substance: OXALIPLATIN
     Indication: GASTRIC CANCER
     Route: 041
     Dates: start: 20160629, end: 20160629

REACTIONS (1)
  - Bone marrow failure [Recovering/Resolving]

NARRATIVE: CASE EVENT DATE: 20160629
